FAERS Safety Report 9397794 (Version 1)
Quarter: 2013Q3

REPORT INFORMATION
  Report Type: Spontaneous
  Country: AU (occurrence: AU)
  Receive Date: 20130712
  Receipt Date: 20130712
  Transmission Date: 20140515
  Serious: Yes (Death, Hospitalization, Other)
  Sender: FDA-Public Use
  Company Number: AU-B.I. PHARMACEUTICALS,INC./RIDGEFIELD-2013-AU-00845AU

PATIENT
  Sex: Male

DRUGS (3)
  1. PRADAXA [Suspect]
     Indication: CEREBROVASCULAR ACCIDENT PROPHYLAXIS
     Dates: start: 20110705
  2. PRADAXA [Suspect]
     Indication: ATRIAL FIBRILLATION
  3. FLECAINIDE [Concomitant]
     Indication: ATRIAL FIBRILLATION
     Dates: start: 2008

REACTIONS (2)
  - Lung cancer metastatic [Fatal]
  - Thoracic vertebral fracture [Unknown]
